FAERS Safety Report 18060894 (Version 2)
Quarter: 2020Q3

REPORT INFORMATION
  Report Type: Spontaneous
  Country: US (occurrence: US)
  Receive Date: 20200723
  Receipt Date: 20200825
  Transmission Date: 20201103
  Serious: Yes (Hospitalization, Other)
  Sender: FDA-Public Use
  Company Number: US-GW PHARMA-202007USGW02537

PATIENT

DRUGS (2)
  1. EPIDIOLEX [Suspect]
     Active Substance: CANNABIDIOL
     Indication: PRODUCT USED FOR UNKNOWN INDICATION
     Dosage: 560 MILLIGRAM, BID
     Route: 048
     Dates: start: 202003, end: 2020
  2. EPIDIOLEX [Suspect]
     Active Substance: CANNABIDIOL
     Dosage: UNK, SLOWLY GETTING OFF THE MEDICATION
     Route: 048
     Dates: start: 2020

REACTIONS (2)
  - Headache [Unknown]
  - Brain operation [Unknown]

NARRATIVE: CASE EVENT DATE: 2020
